FAERS Safety Report 9300267 (Version 1)
Quarter: 2013Q2

REPORT INFORMATION
  Report Type: Spontaneous
  Country: GB (occurrence: GB)
  Receive Date: 20130521
  Receipt Date: 20130521
  Transmission Date: 20140414
  Serious: Yes (Death, Hospitalization, Other)
  Sender: FDA-Public Use
  Company Number: PHHY2013GB050284

PATIENT
  Sex: Female

DRUGS (1)
  1. LETROZOLE [Suspect]
     Indication: BREAST CANCER
     Dosage: UNK UKN, UNK

REACTIONS (5)
  - Death [Fatal]
  - Tumour haemorrhage [Recovering/Resolving]
  - Haemoglobin decreased [Unknown]
  - Breast cancer [Unknown]
  - Malignant neoplasm progression [Unknown]
